FAERS Safety Report 6277830-7 (Version None)
Quarter: 2009Q3

REPORT INFORMATION
  Report Type: 
  Country: None (occurrence: None)
  Receive Date: 20090717
  Receipt Date: 20090717
  Transmission Date: 20100115
  Serious: Yes (Life-Threatening, Hospitalization, Disabling)
  Sender: FDA-Public Use
  Company Number: None

PATIENT
  Age: 57 Year
  Sex: Male
  Weight: 105.6 kg

DRUGS (15)
  1. LOVASTATIN [Suspect]
     Indication: HYPERLIPIDAEMIA
     Dosage: 40 MG QD PO
     Route: 048
  2. CYCLOSPORINE [Suspect]
     Indication: RENAL TRANSPLANT
     Dosage: 25 MG Q12H PO
     Route: 048
  3. CELLCEPT [Concomitant]
  4. CYCLOSPORINE [Concomitant]
  5. LOVASTATIN [Concomitant]
  6. ALLOPURINOL [Concomitant]
  7. IMDUR [Concomitant]
  8. LASIX [Concomitant]
  9. CLONIDINE [Concomitant]
  10. ASPIRIN [Concomitant]
  11. IRON [Concomitant]
  12. FISH OIL [Concomitant]
  13. FOLIC ACID [Concomitant]
  14. VITAMIN B-12 [Concomitant]
  15. TOPROL-XL [Concomitant]

REACTIONS (2)
  - DRUG INTERACTION [None]
  - RHABDOMYOLYSIS [None]
